FAERS Safety Report 12181679 (Version 1)
Quarter: 2016Q1

REPORT INFORMATION
  Report Type: Spontaneous
  Country: US (occurrence: None)
  Receive Date: 20160315
  Receipt Date: 20160315
  Transmission Date: 20160526
  Serious: Yes (Hospitalization, Other)
  Sender: FDA-Public Use
  Company Number: US-MDT-ADR-2016-00391

PATIENT
  Age: 45 Year
  Sex: Female

DRUGS (1)
  1. LIORESAL [Suspect]
     Active Substance: BACLOFEN
     Indication: MUSCLE SPASTICITY
     Dosage: 225.69 MCG/DAY

REACTIONS (20)
  - Flank pain [None]
  - Pain [None]
  - Medical device site discolouration [None]
  - Hypersensitivity [None]
  - Pain in extremity [None]
  - Back pain [None]
  - Medical device site erythema [None]
  - Complex regional pain syndrome [None]
  - Urinary tract infection [None]
  - Complication associated with device [None]
  - Incision site infection [None]
  - Urinary incontinence [None]
  - Muscle spasms [None]
  - Implant site infection [None]
  - Medical device site pain [None]
  - Arthralgia [None]
  - Medical device site swelling [None]
  - Medical device site warmth [None]
  - Hyperaesthesia [None]
  - Condition aggravated [None]
